FAERS Safety Report 7334452-4 (Version None)
Quarter: 2011Q1

REPORT INFORMATION
  Report Type: 
  Country: None (occurrence: None)
  Receive Date: 20110307
  Receipt Date: 20110302
  Transmission Date: 20110831
  Serious: Yes (Disabling)
  Sender: FDA-Public Use
  Company Number: JP-SANOFI-AVENTIS-2011SA012753

PATIENT
  Age: 87 Year
  Sex: Male

DRUGS (9)
  1. TAKEPRON [Concomitant]
  2. NATRIX [Suspect]
     Route: 048
     Dates: start: 20101214, end: 20101228
  3. SIGMART [Concomitant]
  4. GASMOTIN [Concomitant]
  5. THEO-DUR [Suspect]
     Route: 048
     Dates: start: 20101214, end: 20101228
  6. KLARICID [Concomitant]
  7. PLAVIX [Concomitant]
  8. FRANDOL [Concomitant]
  9. SEREVENT [Concomitant]

REACTIONS (5)
  - BLOOD CREATINE PHOSPHOKINASE INCREASED [None]
  - UNRESPONSIVE TO STIMULI [None]
  - DEHYDRATION [None]
  - MUSCULAR WEAKNESS [None]
  - HYPONATRAEMIA [None]
